FAERS Safety Report 13837729 (Version 1)
Quarter: 2017Q3

REPORT INFORMATION
  Report Type: Spontaneous
  Country: US (occurrence: US)
  Receive Date: 20170806
  Receipt Date: 20170806
  Transmission Date: 20171127
  Serious: Yes (Death, Hospitalization, Other)
  Sender: FDA-Public Use
  Company Number: US-AMGEN-USASP2017117460

PATIENT
  Age: 27 Year
  Sex: Male

DRUGS (1)
  1. BLINATUMOMAB [Suspect]
     Active Substance: BLINATUMOMAB
     Indication: ACUTE LYMPHOCYTIC LEUKAEMIA
     Dosage: UNK
     Route: 065

REACTIONS (6)
  - Sepsis [Fatal]
  - Pneumonia [Not Recovered/Not Resolved]
  - Mucormycosis [Recovered/Resolved]
  - Febrile neutropenia [Recovering/Resolving]
  - Acute lymphocytic leukaemia recurrent [Fatal]
  - Neutropenia [Not Recovered/Not Resolved]
